FAERS Safety Report 5773326-7 (Version None)
Quarter: 2008Q2

REPORT INFORMATION
  Report Type: 
  Country: None (occurrence: None)
  Receive Date: 20080601
  Receipt Date: 20080321
  Transmission Date: 20081010
  Serious: No
  Sender: FDA-Public Use
  Company Number: US200803005379

PATIENT
  Age: 61 Year
  Sex: Male
  Weight: 113.4 kg

DRUGS (12)
  1. BYETTA [Suspect]
     Indication: TYPE 2 DIABETES MELLITUS
     Dosage: 5 UG, 2/D, SUBCUTANEOUS ; 10 UG, 2/D, SUBCUTANEOUS
     Route: 058
     Dates: start: 20071101, end: 20071201
  2. BYETTA [Suspect]
     Indication: TYPE 2 DIABETES MELLITUS
     Dosage: 5 UG, 2/D, SUBCUTANEOUS ; 10 UG, 2/D, SUBCUTANEOUS
     Route: 058
     Dates: start: 20071201
  3. BYETTA [Suspect]
     Dosage: 10 UG, SUBCUTANEOUS
     Route: 058
  4. DRUG USED IN DIABETES [Concomitant]
  5. TRIAMTERENE (TRIAMTERENE) [Concomitant]
  6. LEVOXYL [Concomitant]
  7. HYZAAR [Concomitant]
  8. TRICOR [Concomitant]
  9. METOPROLOL TARTRATE [Concomitant]
  10. CARTIA XT [Concomitant]
  11. OXYCODONE HCL [Concomitant]
  12. LIPITOR [Concomitant]

REACTIONS (7)
  - BACK PAIN [None]
  - BLOOD GLUCOSE INCREASED [None]
  - INJECTION SITE BRUISING [None]
  - INJECTION SITE HAEMORRHAGE [None]
  - INJECTION SITE PAIN [None]
  - PAIN IN EXTREMITY [None]
  - SPINAL CORD DISORDER [None]
